FAERS Safety Report 7196450-3 (Version None)
Quarter: 2010Q4

REPORT INFORMATION
  Report Type: 
  Country: None (occurrence: None)
  Receive Date: 20101223
  Receipt Date: 20101025
  Transmission Date: 20110411
  Serious: No
  Sender: FDA-Public Use
  Company Number: US-AMGEN-KDL444235

PATIENT

DRUGS (2)
  1. ENBREL [Suspect]
     Indication: PSORIATIC ARTHROPATHY
     Dosage: 50 MG, QWK
     Route: 058
     Dates: start: 20101004
  2. ENBREL [Suspect]
     Dates: start: 20101004

REACTIONS (7)
  - ASTHENIA [None]
  - DIZZINESS [None]
  - FATIGUE [None]
  - FEELING HOT [None]
  - FLUSHING [None]
  - INSOMNIA [None]
  - NAUSEA [None]
